FAERS Safety Report 25404572 (Version 1)
Quarter: 2025Q2

REPORT INFORMATION
  Report Type: Spontaneous
  Country: US (occurrence: US)
  Receive Date: 20250606
  Receipt Date: 20250606
  Transmission Date: 20250717
  Serious: No
  Sender: AUROBINDO
  Company Number: US-AUROBINDO-AUR-APL-2024-038413

PATIENT
  Age: 86 Year
  Sex: Male
  Weight: 77.11 kg

DRUGS (1)
  1. LORATADINE [Suspect]
     Active Substance: LORATADINE
     Indication: Sneezing
     Route: 065

REACTIONS (2)
  - Off label use [Unknown]
  - Drug ineffective [Unknown]
